FAERS Safety Report 4746742-X (Version None)
Quarter: 2005Q3

REPORT INFORMATION
  Report Type: 
  Country: None (occurrence: None)
  Receive Date: 20050816
  Receipt Date: 20050816
  Transmission Date: 20060218
  Serious: Yes (Life-Threatening, Hospitalization)
  Sender: FDA-Public Use
  Company Number: None

PATIENT
  Age: 62 Year
  Sex: Female
  Weight: 54.4316 kg

DRUGS (1)
  1. ALEVE [Suspect]
     Dosage: HAD USED SEVERAL TIMES BEFORE

REACTIONS (2)
  - CIRCULATORY COLLAPSE [None]
  - HYPERSENSITIVITY [None]
